FAERS Safety Report 6823486-1 (Version None)
Quarter: 2010Q3

REPORT INFORMATION
  Report Type: 
  Country: None (occurrence: None)
  Receive Date: 20100708
  Receipt Date: 20100630
  Transmission Date: 20110219
  Serious: Yes (Other)
  Sender: FDA-Public Use
  Company Number: JP-JNJFOC-20100701544

PATIENT
  Age: 79 Year
  Sex: Male

DRUGS (9)
  1. CRAVIT [Suspect]
     Indication: PHARYNGITIS
     Route: 048
  2. CALBLOCK [Suspect]
     Indication: HYPERTENSION
     Route: 065
  3. ADALAT CC [Suspect]
     Indication: HYPERTENSION
     Route: 065
  4. ADALAT CC [Suspect]
     Route: 065
  5. TOWAMIN [Suspect]
     Indication: HYPERTENSION
     Route: 065
  6. TOWAMIN [Suspect]
     Route: 065
  7. CONIEL [Suspect]
     Indication: HYPERTENSION
     Route: 065
  8. AMLODIPINE [Suspect]
     Indication: HYPERTENSION
     Route: 065
  9. URINORM [Concomitant]
     Indication: HYPERURICAEMIA
     Route: 065

REACTIONS (3)
  - BLOOD PRESSURE DECREASED [None]
  - BRADYCARDIA [None]
  - CHEST DISCOMFORT [None]
